FAERS Safety Report 5112993-8 (Version None)
Quarter: 2006Q3

REPORT INFORMATION
  Report Type: 
  Country: None (occurrence: None)
  Receive Date: 20060921
  Receipt Date: 20060921
  Transmission Date: 20061208
  Serious: No
  Sender: FDA-Public Use
  Company Number: None

PATIENT
  Sex: Male
  Weight: 119.1 kg

DRUGS (1)
  1. ASPIRIN/DIPYRIDAMOLE 25/200 [Suspect]
     Indication: CAROTID ARTERY OCCLUSION
     Dosage: 25/200 BID PO
     Route: 048
     Dates: start: 20060809, end: 20060814

REACTIONS (1)
  - DIZZINESS [None]
